FAERS Safety Report 6128556-1 (Version None)
Quarter: 2009Q1

REPORT INFORMATION
  Report Type: 
  Country: None (occurrence: None)
  Receive Date: 20090323
  Receipt Date: 20090310
  Transmission Date: 20090719
  Serious: Yes (Death, Hospitalization)
  Sender: FDA-Public Use
  Company Number: ES-ELI_LILLY_AND_COMPANY-ES200903002754

PATIENT
  Age: 24 Year
  Sex: Male

DRUGS (9)
  1. OLANZAPINE [Suspect]
     Dosage: UNK, UNKNOWN
  2. OLANZAPINE [Suspect]
     Dosage: 40 MG, DAILY (1/D)
  3. PROZAC [Suspect]
  4. RISPERIDONE [Concomitant]
  5. HALOPERIDOL [Concomitant]
  6. QUETIAPINE FUMARATE [Concomitant]
  7. PAROXETINE HCL [Concomitant]
  8. CLOMIPRAMINE [Concomitant]
  9. MIRTAZAPINE [Concomitant]

REACTIONS (7)
  - AGITATION [None]
  - MENTAL IMPAIRMENT [None]
  - NEURODEGENERATIVE DISORDER [None]
  - OVERDOSE [None]
  - SELF INJURIOUS BEHAVIOUR [None]
  - THERAPEUTIC RESPONSE DECREASED [None]
  - URINARY TRACT INFECTION [None]
